FAERS Safety Report 19975963 (Version 1)
Quarter: 2021Q4

REPORT INFORMATION
  Report Type: Spontaneous
  Country: IT (occurrence: IT)
  Receive Date: 20211020
  Receipt Date: 20211020
  Transmission Date: 20220303
  Serious: Yes (Death, Life-Threatening)
  Sender: FDA-Public Use
  Company Number: IT-NOSTRUM LABORATORIES, INC.-2120803

PATIENT
  Age: 18 Year
  Sex: Male
  Weight: 70 kg

DRUGS (3)
  1. METHADONE HYDROCHLORIDE [Suspect]
     Active Substance: METHADONE HYDROCHLORIDE
     Indication: Accidental overdose
     Route: 048
  2. MIRTAZAPINE [Interacting]
     Active Substance: MIRTAZAPINE
     Route: 048
  3. FLURAZEPAM [Interacting]
     Active Substance: FLURAZEPAM HYDROCHLORIDE
     Route: 048

REACTIONS (2)
  - Accidental overdose [Fatal]
  - Pneumonia [Fatal]
